FAERS Safety Report 17071151 (Version 1)
Quarter: 2019Q4

REPORT INFORMATION
  Report Type: Spontaneous
  Country: US (occurrence: US)
  Receive Date: 20191025
  Receipt Date: 20191025
  Transmission Date: 20200122
  Serious: Yes (Other)
  Sender: FDA-Public Use
  Company Number: None

PATIENT
  Age: 72 Year
  Sex: Female
  Weight: 56.97 kg

DRUGS (1)
  1. CARBOPLATIN. [Suspect]
     Active Substance: CARBOPLATIN
     Indication: NON-SMALL CELL LUNG CANCER
     Route: 042
     Dates: start: 20190909

REACTIONS (5)
  - Blood pressure increased [None]
  - Flushing [None]
  - Dyspnoea [None]
  - Infusion related reaction [None]
  - Heart rate increased [None]

NARRATIVE: CASE EVENT DATE: 20191022
